FAERS Safety Report 7104913-1 (Version None)
Quarter: 2010Q4

REPORT INFORMATION
  Report Type: 
  Country: None (occurrence: None)
  Receive Date: 20101116
  Receipt Date: 20101109
  Transmission Date: 20110411
  Serious: Yes (Hospitalization)
  Sender: FDA-Public Use
  Company Number: FR-KINGPHARMUSA00001-K201000539

PATIENT
  Age: 85 Year
  Sex: Female

DRUGS (13)
  1. ALTACE [Suspect]
     Indication: CARDIAC FAILURE
     Dosage: 2.5 MG, UNK
     Route: 048
     Dates: end: 20100919
  2. ALTACE [Suspect]
     Indication: OEDEMA DUE TO CARDIAC DISEASE
     Dosage: 1.25 UNK, UNK
     Dates: start: 20100920
  3. SELOKEN [Suspect]
     Indication: CARDIAC FAILURE
     Dosage: 25 MG, UNK
     Route: 048
     Dates: end: 20100919
  4. FOSAMAX [Concomitant]
  5. LOPERAMIDE [Concomitant]
  6. NITROMEX [Concomitant]
  7. ACETAMINOPHEN [Concomitant]
  8. IMPUGAN [Concomitant]
  9. TROMBYL [Concomitant]
  10. IMDUR [Concomitant]
  11. PREDNISOLONE [Concomitant]
  12. KALCIPOS [Concomitant]
  13. ESOMEPRAZOLE MAGNESIUM [Concomitant]

REACTIONS (6)
  - ERYSIPELAS [None]
  - ERYTHEMA [None]
  - HYPOTENSION [None]
  - OEDEMA PERIPHERAL [None]
  - OVERDOSE [None]
  - PAIN IN EXTREMITY [None]
